FAERS Safety Report 9562899 (Version 1)
Quarter: 2013Q3

REPORT INFORMATION
  Report Type: Spontaneous
  Country: US (occurrence: US)
  Receive Date: 20130927
  Receipt Date: 20130927
  Transmission Date: 20140515
  Serious: Yes (Other)
  Sender: FDA-Public Use
  Company Number: US-TEVA-434851USA

PATIENT
  Age: 67 Year
  Sex: Female
  Weight: 68.1 kg

DRUGS (21)
  1. ACTIQ [Suspect]
     Indication: BREAKTHROUGH PAIN
     Route: 048
  2. BACLOFEN [Concomitant]
  3. KLONOPIN [Concomitant]
     Indication: MUSCLE RELAXANT THERAPY
  4. KLONOPIN [Concomitant]
     Indication: ANXIETY
  5. EFFEXOR [Concomitant]
  6. FAMCICLOVIR [Concomitant]
     Indication: ANTIVIRAL PROPHYLAXIS
  7. SEROQUEL [Concomitant]
     Indication: SLEEP DISORDER
  8. KCL [Concomitant]
  9. FUROSEMIDE [Concomitant]
  10. SYNTHROID [Concomitant]
     Indication: HYPERTHYROIDISM
  11. PROTONIX [Concomitant]
  12. OXYCODONE [Concomitant]
     Indication: PAIN
  13. NAVANE [Concomitant]
  14. VALIUM [Concomitant]
  15. COMPAZINE [Concomitant]
     Indication: NAUSEA
  16. IBUPROFEN [Concomitant]
     Indication: PAIN
  17. TYLENOL [Concomitant]
     Indication: PAIN
  18. VELCADE [Concomitant]
     Indication: CHEMOTHERAPY
  19. VELCADE [Concomitant]
     Indication: PLASMA CELL MYELOMA
  20. DECADRON [Concomitant]
     Indication: CHEMOTHERAPY
  21. DECADRON [Concomitant]
     Indication: PLASMA CELL MYELOMA

REACTIONS (4)
  - Drug withdrawal syndrome [Not Recovered/Not Resolved]
  - Pain [Not Recovered/Not Resolved]
  - Fall [Not Recovered/Not Resolved]
  - Crying [Not Recovered/Not Resolved]
